FAERS Safety Report 17396386 (Version 1)
Quarter: 2020Q1

REPORT INFORMATION
  Report Type: Spontaneous
  Country: US (occurrence: US)
  Receive Date: 20200210
  Receipt Date: 20200210
  Transmission Date: 20200409
  Serious: No
  Sender: FDA-Public Use
  Company Number: US-SA-2020SA031879

PATIENT
  Age: 45 Year
  Sex: Female

DRUGS (19)
  1. MIRTAZAPINE. [Concomitant]
     Active Substance: MIRTAZAPINE
  2. PREDNISONE. [Concomitant]
     Active Substance: PREDNISONE
  3. TOPIRAMATE. [Concomitant]
     Active Substance: TOPIRAMATE
  4. DUPIXENT [Suspect]
     Active Substance: DUPILUMAB
     Dosage: 300 MG, QOW
     Route: 058
     Dates: start: 20191229
  5. CELECOXIB. [Concomitant]
     Active Substance: CELECOXIB
  6. ALBUTEROL HFA [Concomitant]
     Active Substance: ALBUTEROL SULFATE
  7. PAROXETINE. [Concomitant]
     Active Substance: PAROXETINE
  8. DARIFENACIN. [Concomitant]
     Active Substance: DARIFENACIN
  9. DEXILANT [Concomitant]
     Active Substance: DEXLANSOPRAZOLE
  10. DICYCLOMINE [Concomitant]
     Active Substance: DICYCLOMINE HYDROCHLORIDE
  11. FLUTICASONA PROPIONATO + SALMETEROL SANDOZ [Concomitant]
  12. GABAPENTIN. [Concomitant]
     Active Substance: GABAPENTIN
  13. METOCLOPRAM [Concomitant]
     Active Substance: METOCLOPRAMIDE
  14. SPIRIVA [Concomitant]
     Active Substance: TIOTROPIUM BROMIDE MONOHYDRATE
  15. LIPITOR [Concomitant]
     Active Substance: ATORVASTATIN CALCIUM
  16. RIZATRIPTAN. [Concomitant]
     Active Substance: RIZATRIPTAN
  17. ZOLPIDEM [Concomitant]
     Active Substance: ZOLPIDEM TARTRATE
  18. GINGKO BILOBA [Concomitant]
     Active Substance: GINKGO
  19. DULOXETINE. [Concomitant]
     Active Substance: DULOXETINE

REACTIONS (1)
  - Arthralgia [Not Recovered/Not Resolved]

NARRATIVE: CASE EVENT DATE: 20200125
